FAERS Safety Report 25912446 (Version 1)
Quarter: 2025Q4

REPORT INFORMATION
  Report Type: Spontaneous
  Country: JP (occurrence: JP)
  Receive Date: 20251013
  Receipt Date: 20251013
  Transmission Date: 20260118
  Serious: Yes (Other)
  Sender: STRIDES
  Company Number: JP-STRIDES ARCOLAB LIMITED-2025SP012812

PATIENT
  Age: 29 Year
  Sex: Female
  Weight: 58.2 kg

DRUGS (10)
  1. POTASSIUM CHLORIDE [Suspect]
     Active Substance: POTASSIUM CHLORIDE
     Indication: Hypokalaemia
     Dosage: 80 MILLIEQUIVALENT
     Route: 065
  2. DESMOPRESSIN [Suspect]
     Active Substance: DESMOPRESSIN
     Indication: Diabetes insipidus
     Dosage: UNK
     Route: 048
  3. METHYLDOPA [Suspect]
     Active Substance: METHYLDOPA
     Indication: Gestational hypertension
     Dosage: 750 MILLIGRAM
     Route: 065
  4. POTASSIUM GLUCONATE [Suspect]
     Active Substance: POTASSIUM GLUCONATE
     Indication: Hypokalaemia
     Dosage: 7.5 MILLIGRAM
     Route: 065
  5. NIFEDIPINE [Suspect]
     Active Substance: NIFEDIPINE
     Indication: Gestational hypertension
     Dosage: 80 MILLIGRAM
     Route: 065
  6. TETRAFERRIC TRICITRATE DECAHYDRATE [Suspect]
     Active Substance: TETRAFERRIC TRICITRATE DECAHYDRATE
     Indication: Product used for unknown indication
     Dosage: UNK
     Route: 065
  7. DEXAMETHASONE [Suspect]
     Active Substance: DEXAMETHASONE
     Indication: Dexamethasone suppression test
     Dosage: 1 MILLIGRAM
     Route: 065
  8. NICARDIPINE [Suspect]
     Active Substance: NICARDIPINE
     Indication: Gestational hypertension
     Dosage: 60 MILLIGRAM
     Route: 065
  9. INSULIN NOS [Suspect]
     Active Substance: INSULIN NOS
     Indication: Gestational diabetes
     Dosage: BASAL-BOLUS INSULIN THERAPY
     Route: 065
  10. METYRAPONE [Suspect]
     Active Substance: METYRAPONE
     Indication: Cushing^s syndrome
     Dosage: 500 MILLIGRAM
     Route: 065

REACTIONS (4)
  - Premature delivery [Unknown]
  - Drug ineffective [Unknown]
  - Maternal exposure during pregnancy [Unknown]
  - Off label use [Unknown]
